FAERS Safety Report 6454112-1 (Version None)
Quarter: 2009Q4

REPORT INFORMATION
  Report Type: 
  Country: None (occurrence: None)
  Receive Date: 20091124
  Receipt Date: 20091022
  Transmission Date: 20100525
  Serious: Yes (Life-Threatening, Hospitalization)
  Sender: FDA-Public Use
  Company Number: JP-MERCK-0907USA00143

PATIENT
  Age: 79 Year
  Sex: Female

DRUGS (8)
  1. ZETIA [Suspect]
     Indication: DYSLIPIDAEMIA
     Route: 048
     Dates: start: 20090611, end: 20090625
  2. ZETIA [Suspect]
     Route: 065
     Dates: start: 20091008
  3. ASPIRIN [Concomitant]
     Route: 065
  4. SPIRONOLACTONE [Concomitant]
     Route: 065
  5. BENZBROMARONE [Concomitant]
     Route: 065
  6. FAMOTIDINE [Concomitant]
     Route: 065
  7. ROSUVASTATIN CALCIUM [Concomitant]
     Route: 065
  8. FUROSEMIDE [Concomitant]
     Route: 065

REACTIONS (5)
  - ALTERED STATE OF CONSCIOUSNESS [None]
  - BLOOD PRESSURE DECREASED [None]
  - CHEST PAIN [None]
  - TACHYCARDIA [None]
  - VENTRICULAR EXTRASYSTOLES [None]
